FAERS Safety Report 17821264 (Version 1)
Quarter: 2020Q2

REPORT INFORMATION
  Report Type: Spontaneous
  Country: ES (occurrence: ES)
  Receive Date: 20200525
  Receipt Date: 20200525
  Transmission Date: 20200714
  Serious: Yes (Other)
  Sender: FDA-Public Use
  Company Number: ES-ABBVIE-20K-144-3416190-00

PATIENT
  Sex: Female

DRUGS (4)
  1. IMRALDI [Suspect]
     Active Substance: ADALIMUMAB
     Indication: PRODUCT USED FOR UNKNOWN INDICATION
     Route: 058
     Dates: start: 201911
  2. PENTASA [Concomitant]
     Active Substance: MESALAMINE
     Indication: PRODUCT USED FOR UNKNOWN INDICATION
     Dosage: UNKNOWN
     Route: 065
  3. HUMIRA [Suspect]
     Active Substance: ADALIMUMAB
     Indication: PRODUCT USED FOR UNKNOWN INDICATION
     Route: 058
  4. URSOBILANE [Concomitant]
     Indication: HEPATIC ADENOMA
     Dosage: UNKNOWN
     Route: 065

REACTIONS (12)
  - Mood swings [Unknown]
  - Arthralgia [Not Recovered/Not Resolved]
  - Injection site pain [Unknown]
  - Mobility decreased [Unknown]
  - Device issue [Unknown]
  - Nervousness [Unknown]
  - Psoriasis [Unknown]
  - Myalgia [Not Recovered/Not Resolved]
  - Crohn^s disease [Unknown]
  - Loss of personal independence in daily activities [Unknown]
  - Renal colic [Unknown]
  - Fear [Unknown]
